FAERS Safety Report 6046407-0 (Version None)
Quarter: 2009Q1

REPORT INFORMATION
  Report Type: 
  Country: None (occurrence: None)
  Receive Date: 20090122
  Receipt Date: 20090116
  Transmission Date: 20090719
  Serious: Yes (Death)
  Sender: FDA-Public Use
  Company Number: GB-BAYER-200910122BNE

PATIENT
  Sex: Female
  Weight: 75 kg

DRUGS (7)
  1. ASPIRIN [Suspect]
     Indication: PLATELET AGGREGATION INHIBITION
     Dosage: TOTAL DAILY DOSE: 75 MG  UNIT DOSE: 75 MG
     Route: 048
  2. ARTHROTEC [Suspect]
     Indication: OSTEOARTHRITIS
     Route: 048
     Dates: start: 20010301, end: 20081217
  3. DICLOFENAC [Suspect]
     Indication: PAIN
     Route: 048
     Dates: start: 20081107
  4. ADCAL-D3 [Concomitant]
     Indication: DRUG USE FOR UNKNOWN INDICATION
  5. DOMPERIDONE [Concomitant]
     Indication: NAUSEA
  6. FUROSEMIDE [Concomitant]
     Indication: UNEVALUABLE EVENT
  7. ACETAMINOPHEN [Concomitant]
     Indication: DRUG USE FOR UNKNOWN INDICATION

REACTIONS (4)
  - GASTROINTESTINAL HAEMORRHAGE [None]
  - HAEMATEMESIS [None]
  - MELAENA [None]
  - RENAL FAILURE ACUTE [None]
